FAERS Safety Report 9107580 (Version 3)
Quarter: 2014Q1

REPORT INFORMATION
  Report Type: Spontaneous
  Country: US (occurrence: US)
  Receive Date: 20130221
  Receipt Date: 20140109
  Transmission Date: 20141002
  Serious: Yes (Hospitalization)
  Sender: FDA-Public Use
  Company Number: US-B.I. PHARMACEUTICALS,INC./RIDGEFIELD-2013-BI-04359BP

PATIENT
  Age: 78 Year
  Sex: Male
  Weight: 70 kg

DRUGS (8)
  1. PRADAXA [Suspect]
     Indication: CEREBROVASCULAR ACCIDENT PROPHYLAXIS
     Dosage: 300 MG
     Route: 048
     Dates: start: 20120111, end: 20130118
  2. PRADAXA [Suspect]
     Indication: ATRIAL FIBRILLATION
  3. QUINAPRIL [Concomitant]
     Dosage: 20 MG
     Route: 048
     Dates: start: 1983
  4. GLYBURIDE [Concomitant]
     Dosage: 1.5 MG
     Route: 048
  5. FLOMAX [Concomitant]
     Dosage: 0.4 MG
     Route: 048
  6. GLIPIZIDE [Concomitant]
     Dosage: 5 MG
     Route: 048
     Dates: start: 1998
  7. ASPIRIN [Concomitant]
     Dosage: 81 MG
     Route: 048
  8. TERAZOSIN [Concomitant]
     Dosage: 5 MG
     Route: 048
     Dates: start: 1983

REACTIONS (4)
  - Lower gastrointestinal haemorrhage [Recovered/Resolved]
  - Anaemia [Recovered/Resolved]
  - Fatigue [Recovered/Resolved]
  - Dizziness [Recovered/Resolved]
